FAERS Safety Report 7647676-3 (Version None)
Quarter: 2011Q3

REPORT INFORMATION
  Report Type: 
  Country: None (occurrence: None)
  Receive Date: 20110801
  Receipt Date: 20110801
  Transmission Date: 20111222
  Serious: Yes (Life-Threatening)
  Sender: FDA-Public Use
  Company Number: None

PATIENT
  Age: 55 Year
  Sex: Female
  Weight: 61.234 kg

DRUGS (2)
  1. HYOSCYAMINE SULFATE [Suspect]
     Indication: GASTROINTESTINAL PAIN
     Dosage: 1 TABLET
     Route: 048
     Dates: start: 20050101, end: 20110722
  2. HYOSCYAMINE SULFATE [Suspect]
     Indication: MUSCLE SPASMS
     Dosage: 1 TABLET
     Route: 048
     Dates: start: 20050101, end: 20110722

REACTIONS (5)
  - PRODUCT SUBSTITUTION ISSUE [None]
  - CAPSULE PHYSICAL ISSUE [None]
  - RETCHING [None]
  - FOREIGN BODY [None]
  - DYSPNOEA [None]
